FAERS Safety Report 8009351-5 (Version None)
Quarter: 2011Q4

REPORT INFORMATION
  Report Type: 
  Country: None (occurrence: None)
  Receive Date: 20111227
  Receipt Date: 20111215
  Transmission Date: 20120403
  Serious: Yes (Other)
  Sender: FDA-Public Use
  Company Number: US-ASTRAZENECA-2010SE21913

PATIENT
  Age: 753 Month
  Sex: Female

DRUGS (2)
  1. EXPERIMENTAL DRUG [Suspect]
  2. NEXIUM [Suspect]
     Route: 048

REACTIONS (10)
  - ASTHENIA [None]
  - EPIGASTRIC DISCOMFORT [None]
  - DRUG DOSE OMISSION [None]
  - PULMONARY HYPERTENSION [None]
  - ABDOMINAL DISCOMFORT [None]
  - CARDIAC DISORDER [None]
  - MALAISE [None]
  - NAUSEA [None]
  - WRONG DRUG ADMINISTERED [None]
  - EMBOLISM [None]
